FAERS Safety Report 8756833 (Version 1)
Quarter: 2012Q4

REPORT INFORMATION
  Report Type: 
  Country: ZA (occurrence: ZA)
  Receive Date: 20120828
  Receipt Date: 20120828
  Transmission Date: 20130627
  Serious: Yes (Hospitalization)
  Sender: FDA-Public Use
  Company Number: ZA-SANOFI-AVENTIS-2012SA060977

PATIENT
  Age: 47 Year
  Sex: Female

DRUGS (7)
  1. LANTUS [Suspect]
     Indication: TYPE 2 DIABETES MELLITUS
     Dosage: Dose:30 unit(s)
     Route: 058
     Dates: start: 201106
  2. SOLOSTAR [Suspect]
     Indication: DEVICE THERAPY
     Dates: start: 201106
  3. GLUCOPHAGE [Concomitant]
     Indication: DIABETES
     Dosage: reported frequency: TDS
     Route: 048
     Dates: start: 200506
  4. PARACETAMOL/TRAMADOL HYDROCHLORIDE [Concomitant]
     Indication: PAIN
     Dosage: reported frequency: 1TDS
     Route: 048
     Dates: start: 2011
  5. SIMVASTATIN [Concomitant]
     Indication: CHOLESTEROL
     Dosage: reported frequency: nocte
     Route: 048
     Dates: start: 200506
  6. LAMOTRIGINE [Concomitant]
     Indication: BIPOLAR DISORDER
     Route: 048
     Dates: start: 200506
  7. SEROQUEL [Concomitant]
     Indication: BIPOLAR DISORDER
     Route: 048
     Dates: start: 200506

REACTIONS (2)
  - Surgery [Unknown]
  - Blood glucose increased [None]
